FAERS Safety Report 9256339 (Version 1)
Quarter: 2013Q2

REPORT INFORMATION
  Report Type: Spontaneous
  Country: US (occurrence: US)
  Receive Date: 20130425
  Receipt Date: 20130425
  Transmission Date: 20140414
  Serious: No
  Sender: FDA-Public Use
  Company Number: US-ASTRAZENECA-2013SE25315

PATIENT
  Age: 65 Year
  Sex: Female
  Weight: 136.1 kg

DRUGS (7)
  1. SYMBICORT [Suspect]
     Indication: ASTHMA
     Dosage: 320 MCGS BID
     Route: 055
     Dates: start: 20130403
  2. SINGULAIR [Concomitant]
     Indication: ASTHMA
     Route: 048
  3. GENERIC LIPITOR [Concomitant]
     Indication: BLOOD CHOLESTEROL ABNORMAL
     Route: 048
  4. LEXAPRO [Concomitant]
     Indication: ANXIETY
     Route: 048
  5. DILTIAZEM [Concomitant]
     Indication: HEART RATE ABNORMAL
     Route: 048
  6. DIOVAN [Concomitant]
     Indication: CARDIAC DISORDER
     Route: 048
  7. FUROSEMIDE [Concomitant]
     Indication: DIURETIC THERAPY
     Route: 048

REACTIONS (2)
  - Dyspnoea [Unknown]
  - Drug ineffective [Unknown]
